FAERS Safety Report 25030839 (Version 2)
Quarter: 2025Q1

REPORT INFORMATION
  Report Type: Spontaneous
  Country: GB (occurrence: GB)
  Receive Date: 20250303
  Receipt Date: 20250304
  Transmission Date: 20250408
  Serious: Yes (Other)
  Sender: TEVA
  Company Number: GB-TEVA-VS-3303456

PATIENT
  Sex: Male

DRUGS (2)
  1. FENTANYL CITRATE [Suspect]
     Active Substance: FENTANYL CITRATE
     Indication: Pain
     Dosage: FOUR 100 MCG BUCCAL TABLETS
     Route: 065
     Dates: start: 2016
  2. FENTANYL CITRATE [Suspect]
     Active Substance: FENTANYL CITRATE
     Indication: Pain
     Dosage: TWO 200 UG BUCCAL TABLETS
     Route: 065

REACTIONS (2)
  - Withdrawal syndrome [Unknown]
  - Product availability issue [Unknown]
